FAERS Safety Report 23995210 (Version 2)
Quarter: 2024Q2

REPORT INFORMATION
  Report Type: Spontaneous
  Country: CN (occurrence: CN)
  Receive Date: 20240620
  Receipt Date: 20240624
  Transmission Date: 20240716
  Serious: Yes (Life-Threatening, Other)
  Sender: FDA-Public Use
  Company Number: CN-009507513-2406CHN006183

PATIENT
  Age: 62 Year
  Sex: Male

DRUGS (2)
  1. KEYTRUDA [Suspect]
     Active Substance: PEMBROLIZUMAB
     Indication: Lung neoplasm
     Dosage: 200 MILLIGRAM, ONCE
     Route: 041
     Dates: start: 20240521, end: 20240521
  2. GEMCITABINE [Suspect]
     Active Substance: GEMCITABINE
     Indication: Lung neoplasm
     Dosage: 1800 MILLIGRAM, QD
     Route: 041
     Dates: start: 20240520, end: 20240521

REACTIONS (3)
  - Myelosuppression [Recovering/Resolving]
  - Platelet count increased [Unknown]
  - Product use issue [Unknown]

NARRATIVE: CASE EVENT DATE: 20240501
